FAERS Safety Report 5818853-9 (Version None)
Quarter: 2008Q3

REPORT INFORMATION
  Report Type: 
  Country: None (occurrence: None)
  Receive Date: 20080723
  Receipt Date: 20080717
  Transmission Date: 20090109
  Serious: Yes (Other)
  Sender: FDA-Public Use
  Company Number: US-AMGEN-QUU295526

PATIENT
  Sex: Female

DRUGS (4)
  1. ENBREL [Suspect]
     Indication: RHEUMATOID ARTHRITIS
     Route: 058
     Dates: start: 20080523
  2. ARAVA [Concomitant]
     Route: 048
     Dates: start: 20070101
  3. METHOTREXATE SODIUM [Concomitant]
     Route: 048
     Dates: start: 19960101
  4. PHENTERMINE [Concomitant]
     Dates: start: 20080611

REACTIONS (3)
  - DYSPNOEA [None]
  - HEART RATE INCREASED [None]
  - HYPERHIDROSIS [None]
